FAERS Safety Report 7332210-8 (Version None)
Quarter: 2011Q1

REPORT INFORMATION
  Report Type: 
  Country: None (occurrence: None)
  Receive Date: 20110228
  Receipt Date: 20110228
  Transmission Date: 20110831
  Serious: Yes (Other)
  Sender: FDA-Public Use
  Company Number: None

PATIENT
  Sex: Female
  Weight: 74.8435 kg

DRUGS (1)
  1. BONIVA [Suspect]
     Indication: OSTEOPENIA
     Dosage: 1 PILL MONTHLY ORAL
     Route: 048
     Dates: start: 20101201

REACTIONS (7)
  - EAR PAIN [None]
  - PAIN IN JAW [None]
  - DIZZINESS [None]
  - MUSCULOSKELETAL STIFFNESS [None]
  - ARTHRALGIA [None]
  - ANXIETY [None]
  - ABDOMINAL PAIN UPPER [None]
